FAERS Safety Report 9557097 (Version 2)
Quarter: 2014Q1

REPORT INFORMATION
  Report Type: Spontaneous
  Country: US (occurrence: None)
  Receive Date: 20130726
  Receipt Date: 20140123
  Transmission Date: 20141002
  Serious: Yes (Hospitalization)
  Sender: FDA-Public Use
  Company Number: UTC-024775

PATIENT
  Age: 57 Year
  Sex: Female
  Weight: 84.09 kg

DRUGS (1)
  1. REMODULIN [Suspect]
     Indication: PULMONARY ARTERIAL HYPERTENSION
     Dosage: 112.32 UG/KG (0.078 UG/KG, 1 IN 1 MIN) INTRAVENOUS DRIP
     Route: 041
     Dates: start: 201412

REACTIONS (1)
  - Device related infection [None]
